FAERS Safety Report 4519565-4 (Version None)
Quarter: 2004Q4

REPORT INFORMATION
  Report Type: 
  Country: None (occurrence: None)
  Receive Date: 20041206
  Receipt Date: 20041011
  Transmission Date: 20050328
  Serious: Yes (Hospitalization)
  Sender: FDA-Public Use
  Company Number: DE-MERCK-0410DEU00375

PATIENT
  Age: 43 Year
  Sex: Female

DRUGS (1)
  1. VIOXX [Suspect]
     Indication: INTERVERTEBRAL DISC PROTRUSION
     Route: 048
     Dates: start: 20030101

REACTIONS (6)
  - ANGINA PECTORIS [None]
  - CERVICOBRACHIAL SYNDROME [None]
  - DISEASE RECURRENCE [None]
  - HYPERTENSION [None]
  - MYOCARDIAL INFARCTION [None]
  - PSEUDOANGINA [None]
